FAERS Safety Report 5308455-5 (Version None)
Quarter: 2007Q2

REPORT INFORMATION
  Report Type: 
  Country: None (occurrence: None)
  Receive Date: 20070426
  Receipt Date: 20070418
  Transmission Date: 20071010
  Serious: Yes (Other)
  Sender: FDA-Public Use
  Company Number: CH-ROCHE-493845

PATIENT
  Age: 77 Year
  Sex: Female

DRUGS (6)
  1. XELODA [Suspect]
     Dosage: MULTIPLE COURSES.
     Route: 048
     Dates: start: 20040615
  2. XELODA [Suspect]
     Route: 048
  3. ASPIRIN [Concomitant]
     Route: 048
  4. AMARYL [Concomitant]
     Indication: DIABETES MELLITUS
     Route: 048
  5. GLUCOPHAGE [Concomitant]
     Indication: DIABETES MELLITUS
     Route: 048
  6. COAPROVEL [Concomitant]
     Route: 048

REACTIONS (2)
  - PROTHROMBIN TIME PROLONGED [None]
  - SUBDURAL HAEMATOMA [None]
